FAERS Safety Report 7478754-X (Version None)
Quarter: 2011Q2

REPORT INFORMATION
  Report Type: 
  Country: None (occurrence: None)
  Receive Date: 20110513
  Receipt Date: 20110503
  Transmission Date: 20111010
  Serious: Yes (Other)
  Sender: FDA-Public Use
  Company Number: FR-ROCHE-737560

PATIENT
  Sex: Female
  Weight: 85 kg

DRUGS (1)
  1. AVASTIN [Suspect]
     Indication: RENAL CANCER
     Route: 042
     Dates: start: 20100208, end: 20100720

REACTIONS (1)
  - VISUAL ACUITY REDUCED [None]
